FAERS Safety Report 7340855 (Version 6)
Quarter: 2014Q2

REPORT INFORMATION
  Report Type: Report from Study
  Country: US (occurrence: US)
  Receive Date: 20100401
  Receipt Date: 20140415
  Transmission Date: 20141212
  Serious: Yes (Death, Hospitalization, Other)
  Sender: FDA-Public Use
  Company Number: US-BRISTOL-MYERS SQUIBB COMPANY-15032469

PATIENT
  Age: 75 Year
  Sex: Male
  Weight: 75 kg

DRUGS (11)
  1. ERBITUX [Suspect]
     Indication: OESOPHAGEAL ADENOCARCINOMA
     Dosage: LAST ADMIN DATE:15MAR10,CETUXIMAB 796MG+497MG=1293MG
     Dates: start: 20100305
  2. TAXOL [Suspect]
     Indication: OESOPHAGEAL ADENOCARCINOMA
     Dosage: LAST DOSE:15MAR10
     Dates: start: 20100305
  3. CISPLATIN [Suspect]
     Indication: OESOPHAGEAL ADENOCARCINOMA
     Dosage: LAST DOSE:15MAR10
     Dates: start: 20100305
  4. ZOSYN [Concomitant]
     Route: 042
  5. FLUCONAZOLE [Concomitant]
     Route: 042
  6. PROTONIX [Concomitant]
     Route: 042
  7. METOPROLOL [Concomitant]
     Route: 042
  8. INSULIN [Concomitant]
     Route: 042
  9. HEPARIN SODIUM [Concomitant]
     Route: 042
  10. HYDRALAZINE [Concomitant]
     Route: 042
  11. LABETALOL HCL [Concomitant]
     Route: 042

REACTIONS (10)
  - Duodenal ulcer perforation [Fatal]
  - Abdominal sepsis [Fatal]
  - Lung infection [Unknown]
  - Dehydration [Unknown]
  - Renal failure [Unknown]
  - Confusional state [Unknown]
  - Peripheral ischaemia [Unknown]
  - White blood cell count decreased [Recovered/Resolved]
  - Hypoalbuminaemia [Unknown]
  - Aspartate aminotransferase increased [Recovered/Resolved]
